FAERS Safety Report 19177108 (Version 1)
Quarter: 2021Q2

REPORT INFORMATION
  Report Type: Spontaneous
  Country: US (occurrence: US)
  Receive Date: 20210424
  Receipt Date: 20210424
  Transmission Date: 20210717
  Serious: Yes (Other)
  Sender: FDA-Public Use
  Company Number: US-ASTRAZENECA-2021A338495

PATIENT
  Sex: Female
  Weight: 85.7 kg

DRUGS (2)
  1. PLAVIX [Concomitant]
     Active Substance: CLOPIDOGREL BISULFATE
  2. BRILINTA [Suspect]
     Active Substance: TICAGRELOR
     Indication: STENT PLACEMENT
     Dosage: DOSE UNKNOWN, DAILY
     Route: 048
     Dates: start: 20180706

REACTIONS (10)
  - Memory impairment [Unknown]
  - Myocardial infarction [Unknown]
  - Dysgeusia [Unknown]
  - Depressed level of consciousness [Unknown]
  - Fatigue [Unknown]
  - Taste disorder [Unknown]
  - Chest pain [Unknown]
  - COVID-19 [Unknown]
  - Chest discomfort [Unknown]
  - Drug ineffective [Unknown]
